FAERS Safety Report 8653524 (Version 2)
Quarter: 2015Q4

REPORT INFORMATION
  Report Type: Report from Study
  Country: US (occurrence: US)
  Receive Date: 20120709
  Receipt Date: 20151013
  Transmission Date: 20160305
  Serious: Yes (Hospitalization, Other)
  Sender: FDA-Public Use
  Company Number: US-AMGEN-USASP2012040816

PATIENT
  Age: 42 Year
  Sex: Female

DRUGS (1)
  1. ENBREL [Suspect]
     Active Substance: ETANERCEPT
     Indication: RHEUMATOID ARTHRITIS
     Dosage: 50 MG, QWK
     Route: 065
     Dates: start: 20070727

REACTIONS (7)
  - Oophorectomy [Unknown]
  - Ovarian cyst ruptured [Unknown]
  - Bedridden [Not Recovered/Not Resolved]
  - Ovarian cyst [Unknown]
  - Pain [Not Recovered/Not Resolved]
  - Back pain [Not Recovered/Not Resolved]
  - Endometrial thickening [Not Recovered/Not Resolved]

NARRATIVE: CASE EVENT DATE: 2011
